FAERS Safety Report 21861486 (Version 2)
Quarter: 2023Q2

REPORT INFORMATION
  Report Type: Report from Study
  Country: US (occurrence: US)
  Receive Date: 20230113
  Receipt Date: 20230630
  Transmission Date: 20230721
  Serious: Yes (Hospitalization)
  Sender: FDA-Public Use
  Company Number: US-GW PHARMA-2023-US-000271

PATIENT
  Sex: Male

DRUGS (1)
  1. EPIDIOLEX [Suspect]
     Active Substance: CANNABIDIOL
     Indication: Tremor
     Dosage: 0.35 MILLILITER
     Route: 048
     Dates: start: 202212

REACTIONS (2)
  - Hospitalisation [Unknown]
  - Off label use [Unknown]
